FAERS Safety Report 25570440 (Version 1)
Quarter: 2025Q3

REPORT INFORMATION
  Report Type: Spontaneous
  Country: US (occurrence: US)
  Receive Date: 20250717
  Receipt Date: 20250717
  Transmission Date: 20251021
  Serious: No
  Sender: ROCHE
  Company Number: US-ROCHE-10000336283

PATIENT
  Sex: Female
  Weight: 86.18 kg

DRUGS (2)
  1. XOLAIR [Suspect]
     Active Substance: OMALIZUMAB
     Indication: Urticaria
     Route: 058
     Dates: start: 202103
  2. XOLAIR [Suspect]
     Active Substance: OMALIZUMAB

REACTIONS (5)
  - Product dose omission issue [Unknown]
  - Product container seal issue [Unknown]
  - Device breakage [Unknown]
  - Needle issue [Unknown]
  - No adverse event [Unknown]
